FAERS Safety Report 8384062-5 (Version None)
Quarter: 2012Q2

REPORT INFORMATION
  Report Type: 
  Country: None (occurrence: None)
  Receive Date: 20120524
  Receipt Date: 20120509
  Transmission Date: 20120825
  Serious: Yes (Other)
  Sender: FDA-Public Use
  Company Number: CHPA2012CA010816

PATIENT
  Age: 92 Year
  Sex: Female

DRUGS (2)
  1. EX-LAX CHOCOLATE PIECES [Suspect]
     Indication: CONSTIPATION
     Dosage: 2 PACKS, A WEEK
     Route: 048
  2. DRUG THERAPY NOS [Concomitant]
     Dosage: UNK, UNK

REACTIONS (5)
  - INCORRECT DRUG ADMINISTRATION DURATION [None]
  - DRUG DEPENDENCE [None]
  - DIARRHOEA [None]
  - MEMORY IMPAIRMENT [None]
  - OVERDOSE [None]
